FAERS Safety Report 26080761 (Version 2)
Quarter: 2025Q4

REPORT INFORMATION
  Report Type: Spontaneous
  Country: IQ (occurrence: IQ)
  Receive Date: 20251124
  Receipt Date: 20251128
  Transmission Date: 20260117
  Serious: Yes (Death)
  Sender: JOHNSON AND JOHNSON
  Company Number: IQ-JNJFOC-20251163969

PATIENT
  Age: 70 Year
  Sex: Female

DRUGS (1)
  1. AMIVANTAMAB [Suspect]
     Active Substance: AMIVANTAMAB
     Indication: Non-small cell lung cancer
     Dosage: 1050 MG /VIAL/NA/FIRST CYCLE (5 DOSES)/ IV
     Route: 065

REACTIONS (2)
  - Pulmonary embolism [Fatal]
  - Rash [Unknown]

NARRATIVE: CASE EVENT DATE: 20251101
